FAERS Safety Report 13254773 (Version 2)
Quarter: 2017Q2

REPORT INFORMATION
  Report Type: Spontaneous
  Country: NO (occurrence: NO)
  Receive Date: 20170221
  Receipt Date: 20170508
  Transmission Date: 20170830
  Serious: Yes (Hospitalization, Other)
  Sender: FDA-Public Use
  Company Number: NO-ROCHE-1893769

PATIENT
  Age: 85 Year
  Sex: Female

DRUGS (18)
  1. GAZYVARO [Suspect]
     Active Substance: OBINUTUZUMAB
     Route: 042
     Dates: start: 20170221
  2. DEXCHLORPHENIRAMINE [Concomitant]
     Active Substance: DEXCHLORPHENIRAMINE
     Route: 042
     Dates: start: 20170213
  3. PARACETAMOL [Concomitant]
     Active Substance: ACETAMINOPHEN
     Dosage: 1 G UP TO FOUR TIMES A DAY
     Route: 048
  4. PROLIA [Concomitant]
     Active Substance: DENOSUMAB
     Dosage: INJECTION 60 MG EVERY SIX MONTHS
     Route: 058
  5. ZOPICLONE [Concomitant]
     Active Substance: ZOPICLONE
     Dosage: NIGHT.
     Route: 048
  6. RAMIPRIL. [Concomitant]
     Active Substance: RAMIPRIL
     Route: 048
  7. PRADAXA [Concomitant]
     Active Substance: DABIGATRAN ETEXILATE MESYLATE
     Dosage: 500?MG/800 IE X 1
     Route: 048
  8. PARACETAMOL [Concomitant]
     Active Substance: ACETAMINOPHEN
     Indication: PAIN
     Route: 048
     Dates: start: 20170213
  9. GAZYVARO [Suspect]
     Active Substance: OBINUTUZUMAB
     Indication: CHRONIC LYMPHOCYTIC LEUKAEMIA
     Route: 042
     Dates: start: 20170213, end: 20170213
  10. DEXAGALEN [Concomitant]
     Route: 042
     Dates: start: 20170213
  11. PRADAXA [Concomitant]
     Active Substance: DABIGATRAN ETEXILATE MESYLATE
     Route: 048
  12. LEUKERAN [Suspect]
     Active Substance: CHLORAMBUCIL
     Indication: CHRONIC LYMPHOCYTIC LEUKAEMIA
     Dosage: 2 MG, 12 TABLETS
     Route: 048
     Dates: start: 20170213
  13. OXYCONTIN [Concomitant]
     Active Substance: OXYCODONE HYDROCHLORIDE
     Dosage: 40 MG MORNING, 30 MG NIGHT; DEPOT
     Route: 048
  14. METOPROLOL. [Concomitant]
     Active Substance: METOPROLOL
     Dosage: DEPOT
     Route: 048
  15. LACTULOSE. [Concomitant]
     Active Substance: LACTULOSE
     Route: 048
  16. OXYNORM [Concomitant]
     Active Substance: OXYCODONE HYDROCHLORIDE
     Dosage: 10 MG UP TO FOUR TIMES A DAY
     Route: 048
  17. LAXOBERAL [Concomitant]
     Active Substance: SODIUM PICOSULFATE
     Dosage: 8 DROPS
     Route: 054
  18. GAZYVARO [Suspect]
     Active Substance: OBINUTUZUMAB
     Route: 042
     Dates: start: 20170214

REACTIONS (11)
  - Chronic obstructive pulmonary disease [Unknown]
  - Asthma [Unknown]
  - Wheezing [Unknown]
  - Tachycardia [Unknown]
  - Urinary retention [Not Recovered/Not Resolved]
  - Hypertension [Unknown]
  - Pyrexia [Unknown]
  - Spinal compression fracture [Unknown]
  - Atelectasis [Unknown]
  - Respiration abnormal [Unknown]
  - Pollakiuria [Unknown]

NARRATIVE: CASE EVENT DATE: 20170213
